FAERS Safety Report 4772456-6 (Version None)
Quarter: 2005Q3

REPORT INFORMATION
  Report Type: 
  Country: None (occurrence: None)
  Receive Date: 20050916
  Receipt Date: 20050916
  Transmission Date: 20060218
  Serious: Yes (Disabling)
  Sender: FDA-Public Use
  Company Number: None

PATIENT
  Age: 46 Year
  Sex: Female
  Weight: 81.6475 kg

DRUGS (5)
  1. XOLAIR [Suspect]
     Indication: ASTHMA
     Dosage: 300 G SQ MONTHLY
     Route: 058
     Dates: start: 20031120, end: 20040923
  2. PULMICORT [Concomitant]
  3. SOLU-MEDROL [Concomitant]
  4. FORADIL [Concomitant]
  5. ATROVENT [Concomitant]

REACTIONS (3)
  - ARTHRALGIA [None]
  - ASTHENIA [None]
  - SCLERODERMA [None]
